FAERS Safety Report 16152240 (Version 1)
Quarter: 2019Q2

REPORT INFORMATION
  Report Type: Spontaneous
  Country: US (occurrence: US)
  Receive Date: 20190403
  Receipt Date: 20190403
  Transmission Date: 20190711
  Serious: No
  Sender: FDA-Public Use
  Company Number: US-SA-2019SA084111

PATIENT
  Age: 60 Year
  Sex: Female
  Weight: 77 kg

DRUGS (13)
  1. ASPIRIN [ACETYLSALICYLIC ACID] [Concomitant]
     Active Substance: ASPIRIN
     Dosage: 2 TABS BY MOUTH
     Route: 048
     Dates: start: 20190222
  2. STERILE WATER [Concomitant]
     Active Substance: WATER
     Dosage: 16 ML
     Route: 042
  3. CITALOPRAM [Concomitant]
     Active Substance: CITALOPRAM HYDROBROMIDE
     Dosage: 1 TAB, 3 TIMES A WEEK
     Route: 048
     Dates: start: 20190208
  4. SODIUM CHLORIDE. [Concomitant]
     Active Substance: SODIUM CHLORIDE
     Dosage: 0.9 %
     Route: 042
     Dates: start: 20190210
  5. LISINOPRIL. [Concomitant]
     Active Substance: LISINOPRIL
     Dosage: 1 TAB
     Route: 048
     Dates: start: 20190208
  6. VITAMIN D [COLECALCIFEROL] [Concomitant]
     Active Substance: CHOLECALCIFEROL
     Dosage: 1 TAB QD
     Route: 048
     Dates: start: 20190208
  7. ACETAMINOPHEN. [Concomitant]
     Active Substance: ACETAMINOPHEN
     Dosage: 650 MG
     Route: 048
     Dates: start: 20190210
  8. DIPHENHYDRAMINE. [Concomitant]
     Active Substance: DIPHENHYDRAMINE
     Dosage: 510 MG, PRN
     Route: 042
     Dates: start: 20190210
  9. FABRAZYME [Suspect]
     Active Substance: AGALSIDASE BETA
     Indication: FABRY^S DISEASE
     Dosage: 80 MG, EVERY 2 WEEKS
     Route: 041
     Dates: start: 20190210
  10. BENADRYL [Concomitant]
     Active Substance: DIPHENHYDRAMINE HYDROCHLORIDE
     Dosage: 1 CAP PRN
     Route: 048
     Dates: start: 20190222
  11. NORMAL SALINE [Concomitant]
     Active Substance: SODIUM CHLORIDE
     Dosage: 0.9 %
     Route: 042
     Dates: start: 20190210
  12. EPINEPHRINE. [Concomitant]
     Active Substance: EPINEPHRINE
     Dosage: 0.3 MG, PRN
     Route: 058
     Dates: start: 20190210
  13. MULTIPLE VITAMIN WITH FOLIC ACID [Concomitant]
     Active Substance: FOLIC ACID\VITAMINS
     Dosage: 1 TAB, DAILY
     Route: 048
     Dates: start: 20190208

REACTIONS (2)
  - Infusion site extravasation [Unknown]
  - Oedema [Unknown]

NARRATIVE: CASE EVENT DATE: 20190210
